FAERS Safety Report 8889718 (Version 1)
Quarter: 2012Q4

REPORT INFORMATION
  Report Type: 
  Country: IT (occurrence: IT)
  Receive Date: 20121107
  Receipt Date: 20121107
  Transmission Date: 20130627
  Serious: Yes (Hospitalization)
  Sender: FDA-Public Use
  Company Number: PHHY2012IT100387

PATIENT
  Age: 3 Year
  Sex: Male

DRUGS (2)
  1. SALBUTAMOL [Suspect]
     Indication: WHEEZING
     Dosage: 0.1 mg/kg
     Route: 048
  2. SALBUTAMOL [Suspect]
     Dosage: 1.5 mg, TID

REACTIONS (4)
  - Urinary incontinence [Recovered/Resolved]
  - Urinary retention [Recovered/Resolved]
  - Dysuria [Unknown]
  - Drug eruption [Recovered/Resolved]
